FAERS Safety Report 6957355-3 (Version None)
Quarter: 2010Q3

REPORT INFORMATION
  Report Type: 
  Country: None (occurrence: None)
  Receive Date: 20100831
  Receipt Date: 20100818
  Transmission Date: 20110219
  Serious: Yes (Life-Threatening, Hospitalization)
  Sender: FDA-Public Use
  Company Number: GB-RANBAXY-2010RR-37632

PATIENT
  Age: 49 Year
  Sex: Female
  Weight: 55 kg

DRUGS (3)
  1. SERTRALINE HYDROCHLORIDE [Suspect]
     Indication: DEPRESSION
     Dosage: 50 MG, QD
     Route: 048
     Dates: end: 20100808
  2. DIAZEPAM [Concomitant]
     Indication: BACK PAIN
     Dosage: 2 MG, BID
     Route: 048
     Dates: start: 20100805
  3. IBUPROFEN [Concomitant]
     Indication: BACK PAIN
     Dosage: 400 MG, TID
     Route: 048
     Dates: start: 20100805

REACTIONS (1)
  - NEUROLEPTIC MALIGNANT SYNDROME [None]
